FAERS Safety Report 8387682-7 (Version None)
Quarter: 2012Q2

REPORT INFORMATION
  Report Type: 
  Country: None (occurrence: None)
  Receive Date: 20120525
  Receipt Date: 20120523
  Transmission Date: 20120825
  Serious: No
  Sender: FDA-Public Use
  Company Number: US-PFIZER INC-2012125374

PATIENT
  Sex: Female
  Weight: 88.435 kg

DRUGS (14)
  1. OXYCODONE [Concomitant]
     Indication: CONDITION AGGRAVATED
     Dosage: 10 MG, UNK
  2. OMEPRAZOLE [Concomitant]
     Dosage: 20 MG, UNK
  3. PROCHLORPERAZINE [Concomitant]
     Dosage: 25 MG, UNK
  4. CHANTIX [Suspect]
     Indication: SMOKING CESSATION THERAPY
     Dosage: 0.5 MG, 1X/DAY
     Route: 048
     Dates: start: 20100101, end: 20100101
  5. CHANTIX [Suspect]
     Dosage: 1 MG, 1X/DAY
     Dates: start: 20100101, end: 20100101
  6. WELLBUTRIN SR [Concomitant]
     Dosage: 300 MG, UNK
  7. OXYCODONE [Concomitant]
     Indication: SKIN DISORDER
  8. ZOMIG [Concomitant]
     Dosage: 5 MG, UNK
  9. IMITREX [Concomitant]
     Dosage: 60 MG, UNK
  10. ATIVAN [Concomitant]
     Dosage: 1 MG, UNK
  11. METHOCARBAMOL [Concomitant]
     Dosage: 750 MG, UNK
  12. CHANTIX [Suspect]
     Dosage: 1 MG, 2X/DAY
     Dates: start: 20100101, end: 20100101
  13. ADDERALL 5 [Concomitant]
     Dosage: UNK
  14. HYDROCODONE BITARTRATE + ACETAMINOPHEN [Concomitant]
     Dosage: 5/325 MG, UNK

REACTIONS (1)
  - VITAMIN D DEFICIENCY [None]
